FAERS Safety Report 21200640 (Version 2)
Quarter: 2022Q4

REPORT INFORMATION
  Report Type: Spontaneous
  Country: US (occurrence: US)
  Receive Date: 20220811
  Receipt Date: 20221108
  Transmission Date: 20230112
  Serious: No
  Sender: FDA-Public Use
  Company Number: US-SA-SAC20220810001393

PATIENT
  Age: 16 Year
  Sex: Female

DRUGS (1)
  1. DUPIXENT [Suspect]
     Active Substance: DUPILUMAB
     Indication: Eczema
     Dosage: 300 MG FREQUENCY: OTHER
     Route: 058

REACTIONS (3)
  - Injection site rash [Unknown]
  - Therapeutic response decreased [Unknown]
  - Drug ineffective [Unknown]
